FAERS Safety Report 17914241 (Version 2)
Quarter: 2020Q3

REPORT INFORMATION
  Report Type: Spontaneous
  Country: ES (occurrence: ES)
  Receive Date: 20200618
  Receipt Date: 20200714
  Transmission Date: 20201103
  Serious: Yes (Hospitalization, Other)
  Sender: FDA-Public Use
  Company Number: PT-VALIDUS PHARMACEUTICALS LLC-PT-2020VAL000513

PATIENT

DRUGS (4)
  1. FUROSEMIDE. [Suspect]
     Active Substance: FUROSEMIDE
     Indication: PRODUCT USED FOR UNKNOWN INDICATION
     Dosage: UNK
     Route: 065
  2. SALICYLATE SODIUM [Suspect]
     Active Substance: SODIUM SALICYLATE
     Indication: PRODUCT USED FOR UNKNOWN INDICATION
     Dosage: UNK
     Route: 065
  3. FENOFIBRATE. [Suspect]
     Active Substance: FENOFIBRATE
     Indication: PRODUCT USED FOR UNKNOWN INDICATION
     Dosage: UNK
     Route: 065
  4. OMEPRAZOLE. [Suspect]
     Active Substance: OMEPRAZOLE
     Indication: HIATUS HERNIA
     Dosage: UNK
     Route: 065

REACTIONS (8)
  - Ectopic gastric mucosa [Recovering/Resolving]
  - Rectal haemorrhage [Recovering/Resolving]
  - Gastric polyps [Recovering/Resolving]
  - Adenoma benign [Recovering/Resolving]
  - Diarrhoea haemorrhagic [Recovering/Resolving]
  - Off label use [Recovering/Resolving]
  - Dysplasia [Recovering/Resolving]
  - Haemorrhoids [Recovering/Resolving]
